FAERS Safety Report 20131702 (Version 1)
Quarter: 2021Q4

REPORT INFORMATION
  Report Type: Spontaneous
  Country: FR (occurrence: FR)
  Receive Date: 20211130
  Receipt Date: 20211130
  Transmission Date: 20220303
  Serious: Yes (Hospitalization)
  Sender: FDA-Public Use
  Company Number: None

PATIENT
  Age: 56 Year
  Sex: Female
  Weight: 70 kg

DRUGS (4)
  1. ERLOTINIB [Interacting]
     Active Substance: ERLOTINIB
     Indication: Renal cancer metastatic
     Dosage: 150 MILLIGRAM, QD
     Route: 048
     Dates: start: 20210607
  2. AVASTIN [Interacting]
     Active Substance: BEVACIZUMAB
     Indication: Renal cancer metastatic
     Dosage: 712 MILLIGRAM
     Route: 042
     Dates: start: 20210607, end: 20210816
  3. ZOLEDRONIC ACID [Concomitant]
     Active Substance: ZOLEDRONIC ACID
     Indication: Metastases to bone
     Dosage: 4 MILLIGRAM, MONTHLY
     Route: 042
     Dates: start: 20210607, end: 20210910
  4. PREDNISONE [Concomitant]
     Active Substance: PREDNISONE
     Indication: Product used for unknown indication
     Dosage: 60 MILLIGRAM, QD
     Route: 048
     Dates: start: 20210607

REACTIONS (2)
  - Gastric perforation [Recovered/Resolved]
  - Drug interaction [Unknown]

NARRATIVE: CASE EVENT DATE: 20210818
